FAERS Safety Report 22016998 (Version 1)
Quarter: 2023Q1

REPORT INFORMATION
  Report Type: Spontaneous
  Country: US (occurrence: US)
  Receive Date: 20230221
  Receipt Date: 20230221
  Transmission Date: 20230418
  Serious: Yes (Other)
  Sender: FDA-Public Use
  Company Number: GB-ALLERGAN-2304354US

PATIENT
  Sex: Female

DRUGS (2)
  1. ACTONEL [Suspect]
     Active Substance: RISEDRONATE SODIUM
     Indication: Osteoporosis
     Dosage: 35 MG, Q WEEK
     Dates: start: 20140108, end: 201812
  2. ALENDRONATE [Suspect]
     Active Substance: ALENDRONATE SODIUM
     Indication: Osteoporosis
     Dosage: 70 MG, Q WEEK
     Dates: start: 2000, end: 2005

REACTIONS (6)
  - Multiple fractures [Unknown]
  - Comminuted fracture [Unknown]
  - Ankle fracture [Unknown]
  - Joint dislocation [Unknown]
  - Clavicle fracture [Unknown]
  - Off label use [Unknown]

NARRATIVE: CASE EVENT DATE: 20140108
